FAERS Safety Report 10650902 (Version 1)
Quarter: 2014Q4

REPORT INFORMATION
  Report Type: Spontaneous
  Country: US (occurrence: US)
  Receive Date: 20141215
  Receipt Date: 20141215
  Transmission Date: 20150529
  Serious: Yes (Death, Hospitalization, Other)
  Sender: FDA-Public Use
  Company Number: US-AMGEN-USASP2014096788

PATIENT
  Age: 44 Year
  Sex: Female

DRUGS (1)
  1. PANITUMUMAB [Suspect]
     Active Substance: PANITUMUMAB
     Indication: K-RAS GENE MUTATION
     Dosage: UNK
     Route: 065

REACTIONS (9)
  - Death [Fatal]
  - Hospitalisation [Unknown]
  - Dyspnoea [Unknown]
  - Tachycardia [Unknown]
  - Acidosis [Unknown]
  - Bone lesion [Unknown]
  - Metastases to peritoneum [Unknown]
  - Abdominal distension [Unknown]
  - Disease progression [Unknown]
